FAERS Safety Report 9848874 (Version 1)
Quarter: 2013Q4

REPORT INFORMATION
  Report Type: Spontaneous
  Country: US (occurrence: None)
  Receive Date: 20131226
  Receipt Date: 20131226
  Transmission Date: 20140711
  Serious: Yes (Other)
  Sender: FDA-Public Use
  Company Number: PHEH2012US019017

PATIENT
  Age: 45 Year
  Sex: Female
  Weight: 72.1 kg

DRUGS (3)
  1. EXTAVIA [Suspect]
     Indication: MULTIPLE SCLEROSIS
     Route: 058
     Dates: start: 201208, end: 201209
  2. BACLOFEN (BACLOFEN) [Concomitant]
  3. NORETHINDRONE (NORETHISTERONE) [Concomitant]

REACTIONS (4)
  - Depression [None]
  - Nausea [None]
  - Crying [None]
  - Mood altered [None]
